FAERS Safety Report 6171860-1 (Version None)
Quarter: 2009Q2

REPORT INFORMATION
  Report Type: 
  Country: None (occurrence: None)
  Receive Date: 20090429
  Receipt Date: 20090417
  Transmission Date: 20091009
  Serious: Yes (Death, Other)
  Sender: FDA-Public Use
  Company Number: KR-CELGENEUS-THAKP200800255

PATIENT

DRUGS (5)
  1. THALIDOMIDE PHARMION [Suspect]
     Indication: MULTIPLE MYELOMA
     Route: 048
  2. VELCADE [Suspect]
     Indication: MULTIPLE MYELOMA
  3. DEXAMETHASONE 4MG TAB [Suspect]
     Indication: MULTIPLE MYELOMA
  4. MELPHALAN [Suspect]
     Indication: MULTIPLE MYELOMA
     Route: 065
  5. PREDNISONE [Suspect]
     Indication: MULTIPLE MYELOMA
     Route: 065

REACTIONS (12)
  - ANAEMIA [None]
  - ASTHENIA [None]
  - DEATH [None]
  - DIARRHOEA [None]
  - DISEASE PROGRESSION [None]
  - HERPES ZOSTER [None]
  - INFECTION [None]
  - NAUSEA [None]
  - NEUROPATHY PERIPHERAL [None]
  - NEUTROPENIA [None]
  - PNEUMONIA [None]
  - THROMBOCYTOPENIA [None]
